FAERS Safety Report 14870442 (Version 1)
Quarter: 2018Q2

REPORT INFORMATION
  Report Type: Report from Study
  Country: CA (occurrence: CA)
  Receive Date: 20180509
  Receipt Date: 20180509
  Transmission Date: 20180711
  Serious: Yes (Other)
  Sender: FDA-Public Use
  Company Number: CA-BRISTOL-MYERS SQUIBB COMPANY-BMS-2018-041189

PATIENT
  Age: 67 Year
  Sex: Female

DRUGS (1)
  1. ABATACEPT [Suspect]
     Active Substance: ABATACEPT
     Indication: RHEUMATOID ARTHRITIS
     Dosage: QW
     Route: 058

REACTIONS (6)
  - Musculoskeletal stiffness [Unknown]
  - Dyskinesia [Unknown]
  - Movement disorder [Unknown]
  - Immobile [Unknown]
  - Swelling [Unknown]
  - Pain [Unknown]
